FAERS Safety Report 19375010 (Version 10)
Quarter: 2022Q4

REPORT INFORMATION
  Report Type: Report from Study
  Country: JP (occurrence: JP)
  Receive Date: 20210604
  Receipt Date: 20221005
  Transmission Date: 20230113
  Serious: Yes (Other)
  Sender: FDA-Public Use
  Company Number: JP-ONO-2020JP028821

PATIENT
  Age: 48 Year
  Sex: Male
  Weight: 64 kg

DRUGS (4)
  1. BRAFTOVI [Suspect]
     Active Substance: ENCORAFENIB
     Indication: Malignant melanoma
     Dosage: 450 MG, EVERYDAY
     Route: 048
     Dates: start: 20200414, end: 20210414
  2. BRAFTOVI [Suspect]
     Active Substance: ENCORAFENIB
     Indication: Metastatic lymphoma
  3. MEKTOVI [Suspect]
     Active Substance: BINIMETINIB
     Indication: Malignant melanoma
     Dosage: 90 MG, EVERYDAY
     Route: 048
     Dates: start: 20200414, end: 20210414
  4. MEKTOVI [Suspect]
     Active Substance: BINIMETINIB
     Indication: Metastatic lymphoma

REACTIONS (4)
  - Serous retinal detachment [Recovered/Resolved]
  - Liver disorder [Recovered/Resolved]
  - Blood creatine phosphokinase increased [Recovered/Resolved]
  - Malaise [Not Recovered/Not Resolved]

NARRATIVE: CASE EVENT DATE: 20200414
